FAERS Safety Report 9201630 (Version 1)
Quarter: 2013Q2

REPORT INFORMATION
  Report Type: Spontaneous
  Country: FR (occurrence: FR)
  Receive Date: 20130401
  Receipt Date: 20130401
  Transmission Date: 20140414
  Serious: Yes (Hospitalization)
  Sender: FDA-Public Use
  Company Number: PHHY2013FR030767

PATIENT
  Age: 77 Year
  Sex: Female

DRUGS (3)
  1. COTAREG [Suspect]
     Dosage: 1 DF (160 MG VALS AND 12.5 MG HYDRO), QD
     Route: 048
     Dates: end: 20130127
  2. CLARITHROMYCIN [Suspect]
     Dosage: 250 MG, QD
     Route: 048
     Dates: end: 20130127
  3. FUCIDINE [Suspect]
     Indication: ERYSIPELAS
     Dosage: 500 MG, TID
     Route: 048
     Dates: start: 20130121, end: 20130127

REACTIONS (2)
  - Rash maculo-papular [Recovered/Resolved]
  - Pruritus [Recovered/Resolved]
